FAERS Safety Report 9899925 (Version 1)
Quarter: 2014Q1

REPORT INFORMATION
  Report Type: Not Available
  Country: US (occurrence: US)
  Receive Date: 20140214
  Receipt Date: 20140214
  Transmission Date: 20141002
  Serious: No
  Sender: FDA-Public Use
  Company Number: US-VIVUS-2013V1000813

PATIENT
  Age: 45 Year
  Sex: Female
  Weight: 90.8 kg

DRUGS (6)
  1. QSYMIA 3.75MG/23MG [Suspect]
     Indication: WEIGHT DECREASED
     Route: 048
     Dates: start: 20131008, end: 20131021
  2. QSYMIA 7.5MG/46MG [Suspect]
     Indication: WEIGHT DECREASED
     Route: 048
     Dates: start: 20131022
  3. SPIRONOLACTONE [Concomitant]
     Indication: MENIERE^S DISEASE
     Dosage: STARTED ABOUT 1 1/2 YEARS AGO
     Route: 048
  4. METFORMIN [Concomitant]
     Indication: ADRENOGENITAL SYNDROME
     Dosage: STARTED ABOUT 1 1/2 YEARS AGO
     Route: 048
  5. METOPROLOL [Concomitant]
     Indication: ADRENOGENITAL SYNDROME
     Dosage: STARTED 1 1/2 YEARS AGO
     Route: 048
  6. UNSPECIFIED CHOLESTEROL MEDICINE [Concomitant]
     Indication: ADRENOGENITAL SYNDROME
     Dosage: STARTED 1 1/2 YEARS AGO
     Route: 048

REACTIONS (1)
  - Dizziness [Recovering/Resolving]
